FAERS Safety Report 6003718-2 (Version None)
Quarter: 2008Q4

REPORT INFORMATION
  Report Type: 
  Country: None (occurrence: None)
  Receive Date: 20081216
  Receipt Date: 20080812
  Transmission Date: 20090506
  Serious: No
  Sender: FDA-Public Use
  Company Number: US-AMGEN-KDL301002

PATIENT
  Sex: Female

DRUGS (7)
  1. ARANESP [Suspect]
     Indication: ANAEMIA
     Route: 058
     Dates: start: 20080701
  2. SYNTHROID [Concomitant]
  3. ZOCOR [Concomitant]
  4. ALLOPURINOL [Concomitant]
  5. SLOW-K [Concomitant]
  6. UNSPECIFIED ANTIHYPERTENSIVE AGENT [Concomitant]
  7. ZESTRIL [Concomitant]

REACTIONS (2)
  - FAECES DISCOLOURED [None]
  - FREQUENT BOWEL MOVEMENTS [None]
